FAERS Safety Report 5430662-1 (Version None)
Quarter: 2007Q3

REPORT INFORMATION
  Report Type: 
  Country: None (occurrence: None)
  Receive Date: 20070830
  Receipt Date: 20060822
  Transmission Date: 20080115
  Serious: No
  Sender: FDA-Public Use
  Company Number: US-KINGPHARMUSA00001-K200601094

PATIENT

DRUGS (3)
  1. FLORINEF [Suspect]
     Dosage: .1 MG, BID
     Route: 048
     Dates: start: 20040101
  2. ADVAIR DISKUS 100/50 [Concomitant]
     Dosage: UNK, UNK
     Route: 065
  3. FLONASE [Concomitant]
     Dosage: UNK, UNK
     Route: 065

REACTIONS (1)
  - FALSE NEGATIVE LABORATORY RESULT [None]
